FAERS Safety Report 8168199-1 (Version None)
Quarter: 2012Q1

REPORT INFORMATION
  Report Type: 
  Country: None (occurrence: None)
  Receive Date: 20120227
  Receipt Date: 20120216
  Transmission Date: 20120608
  Serious: Yes (Other)
  Sender: FDA-Public Use
  Company Number: BR-PFIZER INC-2012041762

PATIENT
  Age: 85 Year
  Sex: Female

DRUGS (2)
  1. ADALAT [Concomitant]
     Indication: HYPERTENSION
     Dosage: ONE TABLET DAILY
  2. XALATAN [Suspect]
     Indication: GLAUCOMA
     Dosage: 3 UG (ONE DROP IN EACHE EYE), 1X/DAY
     Route: 047
     Dates: start: 20060101

REACTIONS (3)
  - DRUG INEFFECTIVE [None]
  - VISUAL ACUITY REDUCED [None]
  - INTRAOCULAR PRESSURE TEST ABNORMAL [None]
